FAERS Safety Report 23577680 (Version 4)
Quarter: 2024Q1

REPORT INFORMATION
  Report Type: Spontaneous
  Country: US (occurrence: US)
  Receive Date: 20240228
  Receipt Date: 20240327
  Transmission Date: 20240410
  Serious: No
  Sender: FDA-Public Use
  Company Number: US-ORGANON-O2402USA001602

PATIENT
  Sex: Female
  Weight: 79.819 kg

DRUGS (2)
  1. NEXPLANON [Suspect]
     Active Substance: ETONOGESTREL
     Indication: Contraception
     Dosage: 1 IMPLANT, 68 MG RIGHT UPPER  ARM FOR 3 YEARS
     Route: 059
     Dates: start: 20240130
  2. NEXPLANON [Concomitant]
     Active Substance: ETONOGESTREL
     Indication: Contraception
     Dosage: 1 IMPLANT
     Route: 059
     Dates: end: 20240130

REACTIONS (11)
  - Implant site cellulitis [Recovered/Resolved]
  - Peripheral swelling [Recovered/Resolved]
  - Implant site infection [Recovered/Resolved]
  - Implant site mass [Recovered/Resolved]
  - Implant site irritation [Recovered/Resolved]
  - Complication of device removal [Recovered/Resolved]
  - Drainage [Recovered/Resolved]
  - Pyrexia [Recovered/Resolved]
  - Pain [Recovered/Resolved]
  - Erythema [Recovered/Resolved]
  - Subcutaneous haematoma [Recovered/Resolved]

NARRATIVE: CASE EVENT DATE: 20240101
